FAERS Safety Report 4736510-7 (Version None)
Quarter: 2005Q3

REPORT INFORMATION
  Report Type: 
  Country: None (occurrence: None)
  Receive Date: 20050808
  Receipt Date: 20050617
  Transmission Date: 20060218
  Serious: Yes (Hospitalization)
  Sender: FDA-Public Use
  Company Number: US-BRISTOL-MYERS SQUIBB COMPANY-13008529

PATIENT
  Age: 64 Year
  Sex: Male
  Weight: 65 kg

DRUGS (5)
  1. CETUXIMAB [Suspect]
     Indication: PANCREATIC CARCINOMA
     Dosage: TOTAL DOSE ADMIN. THIS COURSE 500 MG.  DRUG DELAYED 19-MAY-2005 TO 09-JUN-2005.
     Route: 042
     Dates: start: 20050609, end: 20050609
  2. GEMCITABINE [Suspect]
     Indication: PANCREATIC CARCINOMA
     Dosage: TOTAL DOSE ADMINISTERED THIS COURSE 1500 MG. HELD 19-MAY-2005 TO 02-JUN-2005/ADMIN.02-JUN-2005.
     Route: 042
     Dates: start: 20050609, end: 20050609
  3. ALTACE [Concomitant]
  4. ATENOLOL [Concomitant]
  5. PREVACID [Concomitant]

REACTIONS (2)
  - NEUTROPHIL COUNT DECREASED [None]
  - WHITE BLOOD CELL COUNT DECREASED [None]
